FAERS Safety Report 4744149-2 (Version None)
Quarter: 2005Q3

REPORT INFORMATION
  Report Type: 
  Country: None (occurrence: None)
  Receive Date: 20050809
  Receipt Date: 20050729
  Transmission Date: 20060218
  Serious: Yes (Death, Other)
  Sender: FDA-Public Use
  Company Number: KII-2005-0017797

PATIENT
  Sex: Male

DRUGS (3)
  1. MORPHINE SULFATE [Suspect]
     Indication: PAIN
  2. BENZODIAZEPINE DERIVATIVES [Concomitant]
  3. HYPNOTICS AND SEDATIVES [Concomitant]

REACTIONS (10)
  - ACCIDENTAL OVERDOSE [None]
  - BLOOD PRESSURE DECREASED [None]
  - HEART RATE INCREASED [None]
  - HYPOVENTILATION [None]
  - LETHARGY [None]
  - LIVEDO RETICULARIS [None]
  - OXYGEN SATURATION DECREASED [None]
  - RESPIRATORY RATE DECREASED [None]
  - RESPIRATORY RATE INCREASED [None]
  - THERAPY NON-RESPONDER [None]
